FAERS Safety Report 19446251 (Version 3)
Quarter: 2021Q2

REPORT INFORMATION
  Report Type: Report from Study
  Country: None (occurrence: FR)
  Receive Date: 20210622
  Receipt Date: 20210626
  Transmission Date: 20210717
  Serious: Yes (Hospitalization)
  Sender: FDA-Public Use
  Company Number: FR-ABBVIE-21K-056-3939278-00

PATIENT
  Sex: Male

DRUGS (2)
  1. DUODOPA [Suspect]
     Active Substance: CARBIDOPA\LEVODOPA
  2. DUODOPA [Suspect]
     Active Substance: CARBIDOPA\LEVODOPA
     Indication: PARKINSON^S DISEASE
     Route: 050
     Dates: start: 202104, end: 2021

REACTIONS (4)
  - Cardiac pacemaker insertion [Unknown]
  - Device difficult to use [Unknown]
  - Device dislocation [Unknown]
  - Dysphagia [Unknown]

NARRATIVE: CASE EVENT DATE: 2021
